FAERS Safety Report 7992103-X (Version None)
Quarter: 2011Q4

REPORT INFORMATION
  Report Type: 
  Country: None (occurrence: None)
  Receive Date: 20111219
  Receipt Date: 20101216
  Transmission Date: 20120403
  Serious: No
  Sender: FDA-Public Use
  Company Number: US-ASTRAZENECA-2010SE59658

PATIENT
  Age: 71 Year
  Sex: Female
  Weight: 59 kg

DRUGS (5)
  1. ASPIRIN [Concomitant]
  2. PLAVIX [Concomitant]
  3. CRESTOR [Suspect]
     Route: 048
  4. CRESTOR [Suspect]
     Route: 048
     Dates: start: 20100101
  5. CRESTOR [Suspect]
     Route: 048
     Dates: start: 20101101

REACTIONS (2)
  - CORONARY ARTERIAL STENT INSERTION [None]
  - PAIN IN EXTREMITY [None]
